FAERS Safety Report 8817339 (Version 1)
Quarter: 2012Q4

REPORT INFORMATION
  Report Type: 
  Country: GB (occurrence: GB)
  Receive Date: 20121004
  Receipt Date: 20121004
  Transmission Date: 20130627
  Serious: Yes (Other)
  Sender: FDA-Public Use
  Company Number: PHHY2012GB084705

PATIENT
  Age: 81 Year
  Sex: Female
  Weight: 82 kg

DRUGS (5)
  1. RAMIPRIL [Suspect]
     Dates: start: 20120531
  2. BISOPROLOL [Concomitant]
     Dates: start: 20120419
  3. ISOSORBIDE MONONITRATE [Concomitant]
     Dates: start: 20120419
  4. WARFARIN SODIUM [Concomitant]
     Dates: start: 20120419
  5. GLYCERYL TRINITRATE [Concomitant]
     Dates: start: 20120628, end: 20120726

REACTIONS (2)
  - Laryngospasm [Recovered/Resolved]
  - Cough [Recovered/Resolved]
